FAERS Safety Report 9071416 (Version 1)
Quarter: 2013Q1

REPORT INFORMATION
  Report Type: Report from Study
  Country: US (occurrence: US)
  Receive Date: 20130129
  Receipt Date: 20130129
  Transmission Date: 20140127
  Serious: No
  Sender: FDA-Public Use
  Company Number: US-ABBOTT-12P-163-0924534-00

PATIENT
  Sex: Female

DRUGS (3)
  1. HUMIRA 40 MG/0.8 ML PEN [Suspect]
     Indication: PSORIASIS
     Dosage: DAY 1, LOADING DOSE
     Dates: start: 20120107
  2. HUMIRA 40 MG/0.8 ML PEN [Suspect]
     Dosage: DAY 8, 1IN 2 WEEKS
     Dates: start: 20120114
  3. MULTIVITAMIN [Concomitant]
     Indication: VITAMIN SUPPLEMENTATION

REACTIONS (2)
  - Acne [Unknown]
  - Sinusitis [Unknown]
